FAERS Safety Report 4541133-9 (Version None)
Quarter: 2004Q4

REPORT INFORMATION
  Report Type: 
  Country: None (occurrence: None)
  Receive Date: 20041228
  Receipt Date: 20041215
  Transmission Date: 20050328
  Serious: Yes (Hospitalization)
  Sender: FDA-Public Use
  Company Number: 200314758BCC

PATIENT
  Age: 51 Year
  Sex: Female
  Weight: 74.8435 kg

DRUGS (7)
  1. ALEVE [Suspect]
     Indication: MUSCULOSKELETAL STIFFNESS
     Dosage: 220 MG, ONCE, ORAL
     Route: 048
     Dates: start: 20031218
  2. CHLOR-TRIMETON [Suspect]
  3. PROZAC [Concomitant]
  4. KLONOPIN [Concomitant]
  5. XANAX [Concomitant]
  6. ATENOLOL [Concomitant]
  7. CHLOROTHIAZIDE [Concomitant]

REACTIONS (2)
  - ANAPHYLACTIC REACTION [None]
  - SYNCOPE [None]
